FAERS Safety Report 6682440-3 (Version None)
Quarter: 2010Q2

REPORT INFORMATION
  Report Type: 
  Country: None (occurrence: None)
  Receive Date: 20100415
  Receipt Date: 20100402
  Transmission Date: 20101027
  Serious: Yes (Hospitalization, Other)
  Sender: FDA-Public Use
  Company Number: US-TYCO HEALTHCARE/MALLINCKRODT-T200901316

PATIENT
  Sex: Male
  Weight: 81.633 kg

DRUGS (23)
  1. OPTIMARK [Suspect]
     Indication: NUCLEAR MAGNETIC RESONANCE IMAGING
     Dosage: 20 ML (CC), SINGLE
     Route: 042
     Dates: start: 20040625, end: 20040625
  2. OMNISCAN [Suspect]
     Indication: NUCLEAR MAGNETIC RESONANCE IMAGING
     Dosage: UNK
     Route: 042
     Dates: start: 20020913, end: 20020913
  3. OMNISCAN [Suspect]
     Indication: ANGIOGRAM
     Dosage: 15 ML, SINGLE
     Route: 042
     Dates: start: 20030521, end: 20030521
  4. OMNISCAN [Suspect]
     Dosage: 20 ML, SINGLE
     Route: 042
     Dates: start: 20030623, end: 20030623
  5. OMNISCAN [Suspect]
     Dosage: 20 ML (CC), SINGLE
     Route: 042
     Dates: start: 20030905, end: 20030905
  6. OMNISCAN [Suspect]
     Indication: NUCLEAR MAGNETIC RESONANCE IMAGING BRAIN
     Dosage: 20 ML, SINGLE
     Route: 042
     Dates: start: 20041021, end: 20041021
  7. OMNISCAN [Suspect]
     Dosage: 15 ML, SINGLE
     Route: 042
     Dates: start: 20041125, end: 20041125
  8. OMNISCAN [Suspect]
     Dosage: 15 ML, SINGLE
     Route: 042
     Dates: start: 20050616, end: 20050616
  9. OMNISCAN [Suspect]
     Dosage: 15 ML, SINGLE
     Route: 042
     Dates: start: 20050705, end: 20050705
  10. OMNISCAN [Suspect]
     Dosage: UNK
     Route: 042
     Dates: start: 20050809, end: 20050809
  11. OMNISCAN [Suspect]
     Dosage: 15 ML, SINGLE
     Route: 042
     Dates: start: 20050927, end: 20050927
  12. OMNISCAN [Suspect]
     Dosage: 20 ML, SINGLE
     Route: 042
     Dates: start: 20051004, end: 20051004
  13. MAGNEVIST [Suspect]
     Indication: NUCLEAR MAGNETIC RESONANCE IMAGING
     Dosage: 18 ML, SINGLE, DOSE EXTRAVASATED
     Route: 042
     Dates: start: 20050311, end: 20050311
  14. MAGNEVIST [Suspect]
     Dosage: 18 ML SINGLE
     Route: 042
     Dates: start: 20050311, end: 20050311
  15. METOPROLOL TARTRATE [Concomitant]
     Dosage: 50 MG, BID
  16. AMIODARONE HCL [Concomitant]
     Dosage: 200 MG, QD
  17. MS CONTIN [Concomitant]
     Dosage: 60 MG, BID
  18. MS CONTIN [Concomitant]
     Dosage: 45 MG, BID
  19. COUMADIN [Concomitant]
     Dosage: 5 MG, QD
  20. PHOSLO [Concomitant]
  21. INSULIN [Concomitant]
     Dosage: 5-7 UNITS TWICE A DAY
  22. ASPIRIN [Concomitant]
     Dosage: 81 MG, QD
  23. ALBUTEROL [Concomitant]
     Dosage: MDI; 4 PUFFS Q4H PRN

REACTIONS (17)
  - ABSCESS [None]
  - CARDIAC FAILURE CONGESTIVE [None]
  - CHRONIC OBSTRUCTIVE PULMONARY DISEASE [None]
  - DEPRESSION [None]
  - DRUG PRESCRIBING ERROR [None]
  - GASTROINTESTINAL HAEMORRHAGE [None]
  - JOINT SPRAIN [None]
  - MYOCARDIAL INFARCTION [None]
  - NEPHROGENIC SYSTEMIC FIBROSIS [None]
  - OFF LABEL USE [None]
  - OSTEOMYELITIS [None]
  - PERIPHERAL ISCHAEMIA [None]
  - PNEUMONIA [None]
  - STAPHYLOCOCCAL BACTERAEMIA [None]
  - SUPRAVENTRICULAR TACHYCARDIA [None]
  - VASCULAR GRAFT COMPLICATION [None]
  - VASCULAR GRAFT OCCLUSION [None]
